FAERS Safety Report 8277383-8 (Version None)
Quarter: 2012Q2

REPORT INFORMATION
  Report Type: 
  Country: None (occurrence: None)
  Receive Date: 20120412
  Receipt Date: 20120403
  Transmission Date: 20120825
  Serious: Yes (Other)
  Sender: FDA-Public Use
  Company Number: CH-ASTRAZENECA-2012SE22215

PATIENT
  Age: 81 Year
  Sex: Male

DRUGS (10)
  1. COLCHICIN STREULI [Suspect]
     Indication: MONARTHRITIS
     Route: 048
     Dates: start: 20120223, end: 20120227
  2. FLAGYL [Concomitant]
     Route: 048
     Dates: start: 20120101, end: 20120207
  3. IMIPENEM AND CILASTATIN SODIUM [Concomitant]
     Route: 041
     Dates: end: 20120208
  4. MG 5-GRANORAL [Concomitant]
     Route: 048
     Dates: start: 20120224
  5. SINTROM [Concomitant]
     Dosage: ACCORDING TO INR
     Route: 048
  6. TORSEMIDE [Concomitant]
     Route: 048
  7. IMIPENEM AND CILASTATIN SODIUM [Concomitant]
     Route: 041
     Dates: start: 20120301
  8. NEXIUM [Suspect]
     Route: 048
     Dates: start: 20111230
  9. ECONAZOLE NITRATE [Concomitant]
     Dosage: DAILY
     Route: 061
     Dates: start: 20120211
  10. FLATULEX [Concomitant]
     Dates: start: 20120212

REACTIONS (2)
  - LEUKOCYTOCLASTIC VASCULITIS [None]
  - ESCHERICHIA URINARY TRACT INFECTION [None]
